FAERS Safety Report 6573409 (Version 5)
Quarter: 2013Q4

REPORT INFORMATION
  Report Type: Spontaneous
  Country: AU (occurrence: IE)
  Receive Date: 20080307
  Receipt Date: 20131113
  Transmission Date: 20140711
  Serious: Yes (Death, Hospitalization, Other)
  Sender: FDA-Public Use
  Company Number: IE-PFIZER INC-2008013168

PATIENT
  Age: 54 Year
  Sex: Male
  Weight: 91.8 kg

DRUGS (10)
  1. LIPITOR [Suspect]
     Indication: BLOOD CHOLESTEROL
     Dosage: 10 MG, 1X/DAY
  2. LIPITOR [Interacting]
     Dosage: 80 MG, 1X/DAY
  3. PREGABALIN [Suspect]
     Indication: PAIN
     Dosage: 100 MG, 3X/DAY
     Route: 048
  4. FUSIDIC ACID [Interacting]
     Indication: OSTEOMYELITIS
     Dosage: 500 MG, EVERY 8 HOURS
  5. ACETYLSALICYLIC ACID [Concomitant]
  6. CLOPIDOGREL [Concomitant]
  7. RAMIPRIL [Concomitant]
  8. FLUCLOXACILLIN [Concomitant]
     Indication: OSTEOMYELITIS
     Dosage: 2 G, EVERY 4 HRS
     Route: 042
  9. METRONIDAZOLE [Concomitant]
     Indication: OSTEOMYELITIS
     Dosage: 500 MG, EVERY 8 HRS
     Route: 042
  10. BUPRENORPHINE [Concomitant]
     Indication: PAIN
     Dosage: 25 UG, UNK
     Route: 061

REACTIONS (13)
  - Drug interaction [Fatal]
  - Rhabdomyolysis [Fatal]
  - Multi-organ failure [Fatal]
  - Death [Fatal]
  - Enterococcal infection [Fatal]
  - Renal failure acute [Fatal]
  - Pneumonia [Fatal]
  - Myocardial ischaemia [Unknown]
  - Diabetes mellitus [Unknown]
  - Osteitis [Unknown]
  - Myocardial infarction [Unknown]
  - Skin ulcer [Unknown]
  - Thrombocytopenia [Unknown]
